FAERS Safety Report 23050110 (Version 1)
Quarter: 2023Q4

REPORT INFORMATION
  Report Type: Spontaneous
  Country: US (occurrence: US)
  Receive Date: 20231010
  Receipt Date: 20231010
  Transmission Date: 20240110
  Serious: No
  Sender: FDA-Public Use
  Company Number: US-BAYER-2023A128296

PATIENT
  Sex: Female

DRUGS (11)
  1. CIPRO [Suspect]
     Active Substance: CIPROFLOXACIN HYDROCHLORIDE
  2. IBRANCE [Concomitant]
     Active Substance: PALBOCICLIB
     Dosage: 125 MG
     Route: 048
  3. CEPHALEXIN MONOHYDRATE [Concomitant]
     Active Substance: CEPHALEXIN MONOHYDRATE
     Route: 048
  4. SULFAMETHOXAZOLE [Concomitant]
     Active Substance: SULFAMETHOXAZOLE
     Route: 048
  5. TRIMETHOPRIM [Concomitant]
     Active Substance: TRIMETHOPRIM
  6. PHENYLALANINE [Concomitant]
     Active Substance: PHENYLALANINE
  7. ATORVASTATIN [Concomitant]
     Active Substance: ATORVASTATIN
     Route: 048
  8. CEFACLOR [Concomitant]
     Active Substance: CEFACLOR
  9. PALBOCICLIB [Concomitant]
     Active Substance: PALBOCICLIB
  10. ASPARTAME [Concomitant]
     Active Substance: ASPARTAME
  11. CEPHALEXIN MONOHYDRATE [Concomitant]
     Active Substance: CEPHALEXIN MONOHYDRATE

REACTIONS (1)
  - Drug hypersensitivity [None]
